FAERS Safety Report 18612446 (Version 1)
Quarter: 2020Q4

REPORT INFORMATION
  Report Type: Spontaneous
  Country: ES (occurrence: ES)
  Receive Date: 20201214
  Receipt Date: 20201214
  Transmission Date: 20210114
  Serious: Yes (Other)
  Sender: FDA-Public Use
  Company Number: ES-PFIZER INC-2018249523

PATIENT
  Age: 54 Year
  Sex: Male

DRUGS (3)
  1. PROCARBAZINE HYDROCHLORIDE [Suspect]
     Active Substance: PROCARBAZINE HYDROCHLORIDE
     Indication: OLIGODENDROGLIOMA
     Dosage: 1 UNK, CYCLIC
     Route: 048
     Dates: start: 20180220, end: 20180306
  2. VINCRISTINE SULFATE. [Suspect]
     Active Substance: VINCRISTINE SULFATE
     Indication: OLIGODENDROGLIOMA
     Dosage: 2 UNK, CYCLIC
     Route: 042
     Dates: start: 20180220, end: 20180314
  3. LOMUSTINE. [Concomitant]
     Active Substance: LOMUSTINE
     Indication: OLIGODENDROGLIOMA
     Dosage: 1 UNK, CYCLIC
     Route: 048
     Dates: start: 20180212

REACTIONS (2)
  - Hypertransaminasaemia [Recovering/Resolving]
  - Off label use [Unknown]

NARRATIVE: CASE EVENT DATE: 20180220
